FAERS Safety Report 5983108-9 (Version None)
Quarter: 2008Q4

REPORT INFORMATION
  Report Type: 
  Country: None (occurrence: None)
  Receive Date: 20081208
  Receipt Date: 20081124
  Transmission Date: 20090506
  Serious: Yes (Hospitalization)
  Sender: FDA-Public Use
  Company Number: GB-TEVA-181609ISR

PATIENT
  Age: 45 Year
  Sex: Male

DRUGS (1)
  1. MESALAMINE [Suspect]
     Indication: COLITIS ULCERATIVE

REACTIONS (4)
  - EOSINOPHILIA [None]
  - HEPATITIS [None]
  - JAUNDICE [None]
  - THROMBOCYTOPENIA [None]
